FAERS Safety Report 17833884 (Version 1)
Quarter: 2020Q2

REPORT INFORMATION
  Report Type: Spontaneous
  Country: US (occurrence: US)
  Receive Date: 20200527
  Receipt Date: 20200527
  Transmission Date: 20200714
  Serious: No
  Sender: FDA-Public Use
  Company Number: None

PATIENT
  Age: 63 Year
  Sex: Male

DRUGS (2)
  1. RIBAVIRIN TAB 200MG [Suspect]
     Active Substance: RIBAVIRIN
     Route: 048
     Dates: start: 202001
  2. EPCLUSA [Concomitant]
     Active Substance: SOFOSBUVIR\VELPATASVIR

REACTIONS (4)
  - Insomnia [None]
  - Paraesthesia [None]
  - Depression [None]
  - Muscular weakness [None]

NARRATIVE: CASE EVENT DATE: 20200527
